FAERS Safety Report 17677157 (Version 1)
Quarter: 2020Q2

REPORT INFORMATION
  Report Type: Spontaneous
  Country: JP (occurrence: JP)
  Receive Date: 20200416
  Receipt Date: 20200416
  Transmission Date: 20200714
  Serious: Yes (Hospitalization, Other)
  Sender: FDA-Public Use
  Company Number: JP-009507513-2004JPN000850J

PATIENT
  Age: 74 Year
  Sex: Male

DRUGS (1)
  1. JANUVIA [Suspect]
     Active Substance: SITAGLIPTIN PHOSPHATE
     Indication: TYPE 2 DIABETES MELLITUS
     Dosage: 50 MILLIGRAM, QD
     Route: 048
     Dates: start: 20200110, end: 20200403

REACTIONS (3)
  - Anti-neutrophil cytoplasmic antibody positive vasculitis [Unknown]
  - Renal impairment [Unknown]
  - Rhabdomyolysis [Not Recovered/Not Resolved]

NARRATIVE: CASE EVENT DATE: 20200207
